FAERS Safety Report 6162753-4 (Version None)
Quarter: 2009Q2

REPORT INFORMATION
  Report Type: 
  Country: None (occurrence: None)
  Receive Date: 20090421
  Receipt Date: 20080430
  Transmission Date: 20091009
  Serious: No
  Sender: FDA-Public Use
  Company Number: US-ASTRAZENECA-2008UW08977

PATIENT
  Age: 72 Year
  Sex: Female
  Weight: 83.9 kg

DRUGS (3)
  1. METOPROLOL SUCCINATE [Suspect]
     Indication: HYPERTENSION
     Route: 048
     Dates: start: 20070101, end: 20080101
  2. METOPROLOL SUCCINATE [Suspect]
     Route: 048
     Dates: start: 20080101
  3. SYNTHROID [Concomitant]

REACTIONS (4)
  - FATIGUE [None]
  - MUSCLE SPASMS [None]
  - POLLAKIURIA [None]
  - TINNITUS [None]
